FAERS Safety Report 12965340 (Version 1)
Quarter: 2016Q4

REPORT INFORMATION
  Report Type: Spontaneous
  Country: US (occurrence: US)
  Receive Date: 20161122
  Receipt Date: 20161122
  Transmission Date: 20170207
  Serious: Yes (Hospitalization, Other)
  Sender: FDA-Public Use
  Company Number: US-SA-2016SA208722

PATIENT
  Age: 55 Year
  Sex: Female
  Weight: 107 kg

DRUGS (15)
  1. HERCEPTIN [Concomitant]
     Active Substance: TRASTUZUMAB
     Indication: BREAST CANCER FEMALE
     Dosage: ONCE @ 180.3 ML/HR OVER 90 MINS
     Route: 042
     Dates: start: 20120529, end: 20120529
  2. HERCEPTIN [Concomitant]
     Active Substance: TRASTUZUMAB
     Indication: BREAST CANCER FEMALE
     Route: 042
     Dates: start: 20121117, end: 20121117
  3. OMEPRAZOLE. [Concomitant]
     Active Substance: OMEPRAZOLE
     Route: 065
  4. TAXOTERE [Suspect]
     Active Substance: DOCETAXEL
     Indication: BREAST CANCER FEMALE
     Route: 042
     Dates: start: 20120529, end: 20120529
  5. TAXOTERE [Suspect]
     Active Substance: DOCETAXEL
     Indication: BREAST CANCER FEMALE
     Route: 065
     Dates: start: 20120825, end: 20120825
  6. CARBOPLATIN. [Concomitant]
     Active Substance: CARBOPLATIN
     Indication: BREAST CANCER FEMALE
     Route: 042
     Dates: start: 20120616, end: 20120616
  7. TAXOTERE [Suspect]
     Active Substance: DOCETAXEL
     Indication: BREAST CANCER FEMALE
     Route: 065
     Dates: start: 20120714, end: 20120714
  8. TAXOTERE [Suspect]
     Active Substance: DOCETAXEL
     Indication: BREAST CANCER FEMALE
     Route: 065
     Dates: start: 20120915, end: 20120915
  9. CARBOPLATIN. [Concomitant]
     Active Substance: CARBOPLATIN
     Indication: BREAST CANCER FEMALE
     Route: 042
     Dates: start: 20120623, end: 20120623
  10. HERCEPTIN [Concomitant]
     Active Substance: TRASTUZUMAB
     Indication: BREAST CANCER FEMALE
     Route: 042
     Dates: start: 20120616, end: 20120616
  11. AMBIEN [Suspect]
     Active Substance: ZOLPIDEM TARTRATE
     Route: 048
     Dates: start: 20120713, end: 20120803
  12. CARBOPLATIN. [Concomitant]
     Active Substance: CARBOPLATIN
     Indication: BREAST CANCER FEMALE
     Route: 042
     Dates: start: 20120529, end: 20120529
  13. TAXOTERE [Suspect]
     Active Substance: DOCETAXEL
     Indication: BREAST CANCER FEMALE
     Route: 065
     Dates: start: 20120623, end: 20120623
  14. HERCEPTIN [Concomitant]
     Active Substance: TRASTUZUMAB
     Indication: BREAST CANCER FEMALE
     Route: 042
     Dates: start: 20121006, end: 20121006
  15. TAXOTERE [Suspect]
     Active Substance: DOCETAXEL
     Indication: BREAST CANCER FEMALE
     Route: 065
     Dates: start: 20120804, end: 20120804

REACTIONS (29)
  - Hypokalaemia [Recovering/Resolving]
  - Injection site vesicles [Unknown]
  - Upper respiratory tract infection [Unknown]
  - Alopecia totalis [Unknown]
  - Injection site pain [Unknown]
  - Depressed mood [Unknown]
  - Skin toxicity [Unknown]
  - Blood bilirubin increased [Unknown]
  - Abnormal dreams [Unknown]
  - Dehydration [Unknown]
  - Chromaturia [Unknown]
  - Leukopenia [Unknown]
  - Diarrhoea [Recovering/Resolving]
  - Blood creatinine increased [Unknown]
  - Insomnia [Unknown]
  - Disability [Unknown]
  - Gastrointestinal sounds abnormal [Unknown]
  - Nausea [Unknown]
  - Vomiting [Unknown]
  - Nail disorder [Recovering/Resolving]
  - Headache [Unknown]
  - Asthenia [Unknown]
  - Eye irritation [Unknown]
  - Rash [Unknown]
  - Oedema peripheral [Unknown]
  - Body temperature increased [Unknown]
  - Impaired work ability [Unknown]
  - Hypoaesthesia [Recovering/Resolving]
  - Skin turgor decreased [Unknown]
